FAERS Safety Report 8615329-0 (Version None)
Quarter: 2012Q3

REPORT INFORMATION
  Report Type: 
  Country: None (occurrence: None)
  Receive Date: 20120823
  Receipt Date: 20120814
  Transmission Date: 20120928
  Serious: Yes (Hospitalization)
  Sender: FDA-Public Use
  Company Number: US-ABBOTT-12P-163-0968505-00

PATIENT
  Age: 65 Year
  Sex: Female

DRUGS (10)
  1. UNKNOWN MEDICATION [Concomitant]
     Indication: INSOMNIA
     Route: 048
  2. HUMIRA [Suspect]
     Indication: RHEUMATOID ARTHRITIS
     Dates: start: 20120601
  3. UNKNOWN MEDICATION [Concomitant]
     Indication: HYPERTENSION
  4. PERCOCET [Concomitant]
     Indication: PAIN
  5. UNKNOWN LIST OF MEDICATIONS [Concomitant]
     Indication: PRODUCT USED FOR UNKNOWN INDICATION
  6. UNKNOWN MEDICATION [Concomitant]
     Indication: DIABETES MELLITUS
     Route: 048
  7. UNKNOWN MEDICATION [Concomitant]
     Indication: RHEUMATOID ARTHRITIS
     Route: 048
  8. UNKNOWN MEDICATION [Concomitant]
     Indication: ASTHMA
     Route: 048
  9. UNKNOWN MEDICATION [Concomitant]
     Indication: PAIN
     Route: 048
  10. UNKNOWN MEDICATION [Concomitant]
     Indication: DEPRESSION
     Route: 048

REACTIONS (2)
  - ASTHMA [None]
  - DEVICE MALFUNCTION [None]
